FAERS Safety Report 9701211 (Version 1)
Quarter: 2013Q4

REPORT INFORMATION
  Report Type: Spontaneous
  Country: US (occurrence: US)
  Receive Date: 20131121
  Receipt Date: 20131121
  Transmission Date: 20140711
  Serious: No
  Sender: FDA-Public Use
  Company Number: US-GILEAD-2008-0016111

PATIENT
  Sex: Female
  Weight: 72.57 kg

DRUGS (18)
  1. LETAIRIS [Suspect]
     Indication: PULMONARY ARTERIAL HYPERTENSION
     Route: 048
     Dates: start: 20080213
  2. REVATIO [Concomitant]
     Route: 048
  3. ALBUTEROL [Concomitant]
  4. LEXAPRO [Concomitant]
     Route: 048
  5. ASPIRIN [Concomitant]
     Route: 048
  6. OXYGEN [Concomitant]
     Route: 045
  7. MULTIVITAMIN [Concomitant]
     Route: 048
  8. GLUCOSAMINE CHONDROITIN [Concomitant]
     Route: 048
  9. LEVOXYL [Concomitant]
     Route: 048
  10. POTASSIUM CL [Concomitant]
     Route: 048
  11. HUMALOG [Concomitant]
     Route: 048
  12. LASIX [Concomitant]
     Route: 048
  13. SOTALOL AF [Concomitant]
     Route: 048
  14. RANITIDINE [Concomitant]
     Route: 048
  15. LOVASTATIN [Concomitant]
     Route: 048
  16. WELLBUTRIN SR [Concomitant]
     Route: 048
  17. COZAAR [Concomitant]
     Route: 048
  18. NITROPATCH [Concomitant]
     Route: 061

REACTIONS (3)
  - Local swelling [Unknown]
  - Oedema peripheral [Unknown]
  - Constipation [Unknown]
